FAERS Safety Report 23623497 (Version 1)
Quarter: 2024Q1

REPORT INFORMATION
  Report Type: Report from Study
  Country: CA (occurrence: CA)
  Receive Date: 20240312
  Receipt Date: 20240312
  Transmission Date: 20240410
  Serious: Yes (Other)
  Sender: FDA-Public Use
  Company Number: CA-PFIZER INC-202400059371

PATIENT
  Age: 21 Year
  Sex: Female

DRUGS (6)
  1. EPINEPHRINE [Suspect]
     Active Substance: EPINEPHRINE
     Dosage: UNK
     Route: 065
  2. MONTELUKAST SODIUM [Suspect]
     Active Substance: MONTELUKAST SODIUM
     Dosage: UNK
     Route: 065
  3. GLYCOPYRROLATE\INDACATEROL\MOMETASONE FUROATE [Suspect]
     Active Substance: GLYCOPYRROLATE\INDACATEROL\MOMETASONE FUROATE
     Indication: Chronic spontaneous urticaria
     Dosage: UNK
  4. BILASTINE [Concomitant]
     Active Substance: BILASTINE
     Indication: Rhinitis allergic
     Dosage: UNK
     Route: 065
  5. BUDESONIDE\FORMOTEROL FUMARATE [Concomitant]
     Active Substance: BUDESONIDE\FORMOTEROL FUMARATE
     Indication: Asthma
     Dosage: UNK, 1X/DAY
  6. PREDNISONE [Concomitant]
     Active Substance: PREDNISONE
     Dosage: 50 MG
     Route: 065

REACTIONS (21)
  - Abdominal pain [Unknown]
  - Angioedema [Unknown]
  - Asthma [Unknown]
  - Chills [Unknown]
  - Urticaria [Unknown]
  - Concomitant disease aggravated [Unknown]
  - Dyspnoea [Unknown]
  - Eosinophil count increased [Unknown]
  - Feeling cold [Unknown]
  - Heart rate increased [Unknown]
  - Hyperhidrosis [Unknown]
  - Nausea [Unknown]
  - Night sweats [Unknown]
  - Oxygen saturation decreased [Unknown]
  - Pruritus [Unknown]
  - Pulmonary embolism [Unknown]
  - Pyrexia [Unknown]
  - Swelling face [Unknown]
  - Vomiting [Unknown]
  - Wheezing [Unknown]
  - Off label use [Unknown]
